FAERS Safety Report 4439604-9 (Version None)
Quarter: 2004Q3

REPORT INFORMATION
  Report Type: 
  Country: None (occurrence: None)
  Receive Date: 20040902
  Receipt Date: 20040715
  Transmission Date: 20050211
  Serious: Yes (Hospitalization)
  Sender: FDA-Public Use
  Company Number: US-BRISTOL-MYERS SQUIBB COMPANY-12641924

PATIENT
  Age: 58 Year
  Sex: Female

DRUGS (2)
  1. CETUXIMAB [Suspect]
     Indication: COLORECTAL CANCER METASTATIC
     Dosage: THERAPY INITIATED 20-FEB-2004, RECEIVED 7 DOSES
     Route: 042
     Dates: start: 20040709, end: 20040709
  2. IRINOTECAN [Suspect]
     Indication: COLORECTAL CANCER METASTATIC
     Dosage: THERAPY INITIATED 20-FEB-2004, RECEIVED 7 DOSES
     Route: 042
     Dates: start: 20040709, end: 20040709

REACTIONS (3)
  - CHILLS [None]
  - PYREXIA [None]
  - SEPSIS [None]
